FAERS Safety Report 5931557-7 (Version None)
Quarter: 2008Q4

REPORT INFORMATION
  Report Type: 
  Country: None (occurrence: None)
  Receive Date: 20081027
  Receipt Date: 20081024
  Transmission Date: 20090506
  Serious: Yes (Hospitalization)
  Sender: FDA-Public Use
  Company Number: B0543596A

PATIENT
  Age: 67 Year
  Sex: Male

DRUGS (3)
  1. AMOXICILLIN [Suspect]
     Dosage: 1500MG PER DAY
     Route: 065
     Dates: start: 20080129
  2. METRONIDAZOLE [Concomitant]
     Dosage: 500MG PER DAY
     Route: 065
  3. LANSOPRAZOLE [Concomitant]
     Dosage: 60MG PER DAY
     Route: 065

REACTIONS (7)
  - ABDOMINAL PAIN [None]
  - DIARRHOEA [None]
  - ENTEROCOLITIS HAEMORRHAGIC [None]
  - GASTROINTESTINAL EROSION [None]
  - MELAENA [None]
  - MUCOSAL HAEMORRHAGE [None]
  - NAUSEA [None]
